FAERS Safety Report 7002385-9 (Version None)
Quarter: 2010Q3

REPORT INFORMATION
  Report Type: 
  Country: None (occurrence: None)
  Receive Date: 20100920
  Receipt Date: 20091006
  Transmission Date: 20110219
  Serious: No
  Sender: FDA-Public Use
  Company Number: US-ASTRAZENECA-2009SE18288

PATIENT
  Age: 19 Year
  Sex: Female
  Weight: 47.2 kg

DRUGS (2)
  1. SEROQUEL XR [Suspect]
     Route: 048
  2. UNSPECIFIED MEDICATION FOR CHOLESTEROL [Concomitant]
     Indication: BLOOD CHOLESTEROL

REACTIONS (2)
  - BLOOD GLUCOSE ABNORMAL [None]
  - HUNGER [None]
